FAERS Safety Report 25520494 (Version 2)
Quarter: 2025Q4

REPORT INFORMATION
  Report Type: Spontaneous
  Country: IN (occurrence: IN)
  Receive Date: 20250704
  Receipt Date: 20251121
  Transmission Date: 20260117
  Serious: Yes (Life-Threatening, Other)
  Sender: PFIZER
  Company Number: IN-PFIZER INC-PV202300084144

PATIENT
  Age: 68 Year
  Sex: Male
  Weight: 61.6 kg

DRUGS (7)
  1. DACOMITINIB [Suspect]
     Active Substance: DACOMITINIB
     Indication: Lung adenocarcinoma
     Dosage: 45 MG, DAILY
     Route: 048
     Dates: start: 20230216
  2. DACOMITINIB [Suspect]
     Active Substance: DACOMITINIB
     Dosage: 30 MG, 1X/DAY (1-0-0)
     Route: 048
     Dates: start: 20230218, end: 20250915
  3. DENOSUMAB [Concomitant]
     Active Substance: DENOSUMAB
     Dosage: 120 MG, MONTHLY (EVERY)
     Route: 058
  4. BECOSULES [ASCORBIC ACID;VITAMIN B NOS] [Concomitant]
     Dosage: 1 DF, 1X/DAY (0-1-0) (FOR 2 MONTH)
  5. CCM [CALCIUM CARBONATE] [Concomitant]
     Dosage: 2 DF, 1X/DAY (0-2-0) (FOR 2 MONTH)
  6. PACLITAXEL [Concomitant]
     Active Substance: PACLITAXEL
     Indication: Lung adenocarcinoma
     Dosage: UNK, CYCLIC
  7. CARBOPLATIN [Concomitant]
     Active Substance: CARBOPLATIN
     Indication: Lung adenocarcinoma
     Dosage: UNK, CYCLIC

REACTIONS (9)
  - Rash [Recovered/Resolved]
  - Lung adenocarcinoma [Unknown]
  - Malignant neoplasm progression [Unknown]
  - Skin toxicity [Unknown]
  - Blood pressure systolic increased [Not Recovered/Not Resolved]
  - Blood pressure increased [Not Recovered/Not Resolved]
  - Oxygen saturation decreased [Recovered/Resolved]
  - Heart rate increased [Recovered/Resolved]
  - Intentional product misuse [Unknown]

NARRATIVE: CASE EVENT DATE: 20240101
